FAERS Safety Report 7266619-8 (Version None)
Quarter: 2011Q1

REPORT INFORMATION
  Report Type: 
  Country: None (occurrence: None)
  Receive Date: 20110131
  Receipt Date: 20110127
  Transmission Date: 20110831
  Serious: Yes (Hospitalization)
  Sender: FDA-Public Use
  Company Number: JP-BRISTOL-MYERS SQUIBB COMPANY-14700827

PATIENT
  Age: 66 Year
  Sex: Male
  Weight: 60 kg

DRUGS (2)
  1. XELODA [Suspect]
     Indication: GASTROOESOPHAGEAL CANCER
     Dosage: ON THE DAY OF 1-15 OF ECAH CYCLE FORM: TABS,INTIAL ADMINS ON 02JUL09 MOST RECENT DOSE ON 09JUL09.
     Route: 048
     Dates: start: 20090527
  2. CISPLATIN [Suspect]
     Indication: GASTROOESOPHAGEAL CANCER
     Dosage: MOST RECENT INFUSION WAS ADMINISTERED ON 02JUL09.ON DAY 1 OF EACH CYCLE
     Route: 042
     Dates: start: 20090527

REACTIONS (1)
  - CONSTIPATION [None]
